FAERS Safety Report 6360853-7 (Version None)
Quarter: 2009Q3

REPORT INFORMATION
  Report Type: 
  Country: None (occurrence: None)
  Receive Date: 20090918
  Receipt Date: 20090910
  Transmission Date: 20100115
  Serious: Yes (Hospitalization)
  Sender: FDA-Public Use
  Company Number: JP-ROCHE-656600

PATIENT
  Sex: Male
  Weight: 73 kg

DRUGS (7)
  1. KYTRIL [Suspect]
     Route: 042
     Dates: start: 20090326, end: 20090818
  2. AVASTIN [Suspect]
     Indication: COLON CANCER
     Route: 041
     Dates: start: 20090428, end: 20090818
  3. OMEPRAL [Suspect]
     Indication: DRUG USE FOR UNKNOWN INDICATION
     Route: 048
     Dates: start: 20090227
  4. ELPLAT [Concomitant]
     Route: 041
     Dates: start: 20090326, end: 20090818
  5. FLUOROURACIL [Concomitant]
     Route: 041
     Dates: start: 20090326, end: 20090818
  6. LEVOFOLINATE [Concomitant]
     Dosage: DRUG: LEVOFOLINATE CALCIUM
     Route: 041
     Dates: start: 20090326, end: 20090818
  7. DECADRON [Concomitant]
     Route: 042
     Dates: start: 20090326, end: 20090818

REACTIONS (1)
  - PNEUMONIA [None]
